FAERS Safety Report 11233170 (Version 2)
Quarter: 2015Q3

REPORT INFORMATION
  Report Type: Spontaneous
  Country: JP (occurrence: JP)
  Receive Date: 20150701
  Receipt Date: 20150706
  Transmission Date: 20151125
  Serious: Yes (Hospitalization, Other)
  Sender: FDA-Public Use
  Company Number: JP-LUNDBECK-DKLU1112746

PATIENT
  Age: 14 Year
  Sex: Female

DRUGS (9)
  1. MYSTAN [Suspect]
     Active Substance: CLOBAZAM
     Indication: EPILEPSY
     Route: 048
     Dates: start: 20090915
  2. MYSTAN [Suspect]
     Active Substance: CLOBAZAM
     Route: 048
     Dates: start: 20110517
  3. MYSTAN [Suspect]
     Active Substance: CLOBAZAM
     Route: 048
     Dates: start: 20111018
  4. MYSTAN [Suspect]
     Active Substance: CLOBAZAM
     Route: 048
     Dates: start: 20120420
  5. TEGRETOL [Concomitant]
     Active Substance: CARBAMAZEPINE
     Indication: PRODUCT USED FOR UNKNOWN INDICATION
     Route: 065
     Dates: start: 200802
  6. MYSTAN [Suspect]
     Active Substance: CLOBAZAM
     Route: 048
     Dates: start: 20110719, end: 20110819
  7. DEPAKENE [Concomitant]
     Active Substance: VALPROIC ACID
     Indication: SEIZURE
     Route: 048
     Dates: start: 201304
  8. MYSTAN [Suspect]
     Active Substance: CLOBAZAM
     Route: 048
     Dates: start: 20110413
  9. MYSTAN [Suspect]
     Active Substance: CLOBAZAM
     Route: 048
     Dates: start: 20130607

REACTIONS (5)
  - Pyrexia [Recovered/Resolved]
  - Lymphocyte count decreased [Unknown]
  - White blood cell count decreased [Unknown]
  - Anticonvulsant drug level decreased [None]
  - Malaise [None]

NARRATIVE: CASE EVENT DATE: 20150417
